FAERS Safety Report 5123627-0 (Version None)
Quarter: 2006Q4

REPORT INFORMATION
  Report Type: 
  Country: None (occurrence: None)
  Receive Date: 20060910
  Receipt Date: 20050809
  Transmission Date: 20070319
  Serious: Yes (Other)
  Sender: FDA-Public Use
  Company Number: USA0508104989

PATIENT
  Age: 69 Year
  Sex: Male
  Weight: 122.3 kg

DRUGS (3)
  1. HUMULIN N [Suspect]
     Dosage: 55 M, DAILY (1/D)
     Dates: start: 19820101
  2. HUMULIN R [Suspect]
     Dates: start: 19820101
  3. INSULIN (INSULIN, ANIMAL) VIAL [Suspect]

REACTIONS (5)
  - BLOOD GLUCOSE DECREASED [None]
  - FALL [None]
  - HAND FRACTURE [None]
  - HYPOACUSIS [None]
  - LOSS OF CONSCIOUSNESS [None]
